FAERS Safety Report 21964959 (Version 3)
Quarter: 2023Q1

REPORT INFORMATION
  Report Type: Spontaneous
  Country: US (occurrence: US)
  Receive Date: 20230207
  Receipt Date: 20230318
  Transmission Date: 20230417
  Serious: No
  Sender: FDA-Public Use
  Company Number: US-JNJFOC-20230202881

PATIENT
  Age: 35 Year
  Sex: Male
  Weight: 93.524 kg

DRUGS (2)
  1. TREMFYA [Suspect]
     Active Substance: GUSELKUMAB
     Indication: Psoriasis
     Route: 058
     Dates: start: 20210723, end: 20221202
  2. TREMFYA [Suspect]
     Active Substance: GUSELKUMAB
     Route: 058
     Dates: start: 20210513

REACTIONS (3)
  - Product dose omission issue [Unknown]
  - Device issue [Unknown]
  - Device malfunction [Unknown]

NARRATIVE: CASE EVENT DATE: 20230121
